FAERS Safety Report 4860436-1 (Version None)
Quarter: 2005Q4

REPORT INFORMATION
  Report Type: 
  Country: None (occurrence: None)
  Receive Date: 20051215
  Receipt Date: 20051206
  Transmission Date: 20060501
  Serious: Yes (Other)
  Sender: FDA-Public Use
  Company Number: 2005164473

PATIENT
  Age: 74 Year
  Sex: Male
  Weight: 113.3993 kg

DRUGS (2)
  1. LIPITOR [Suspect]
     Indication: BLOOD CHOLESTEROL INCREASED
     Dosage: 10 MG (10 MG, 1 IN 1 D), ORAL
     Route: 048
  2. TAMSULOSIN HCL [Concomitant]

REACTIONS (8)
  - ATRIAL FIBRILLATION [None]
  - BACK PAIN [None]
  - CYSTITIS [None]
  - LOW DENSITY LIPOPROTEIN ABNORMAL [None]
  - MYALGIA [None]
  - NERVE INJURY [None]
  - PAIN IN EXTREMITY [None]
  - POST PROCEDURAL COMPLICATION [None]
